FAERS Safety Report 25113621 (Version 2)
Quarter: 2025Q2

REPORT INFORMATION
  Report Type: Spontaneous
  Country: NL (occurrence: NL)
  Receive Date: 20250324
  Receipt Date: 20250430
  Transmission Date: 20250716
  Serious: Yes (Other)
  Sender: MERCK SHARP & DOHME LLC
  Company Number: None

PATIENT
  Age: 8 Year
  Sex: Female
  Weight: 40 kg

DRUGS (3)
  1. M-M-RVAXPRO [Suspect]
     Active Substance: MEASLES VIRUS STRAIN ENDERS^ ATTENUATED EDMONSTON LIVE ANTIGEN\MUMPS VIRUS STRAIN B LEVEL JERYL LYNN
     Dates: start: 20241001
  2. CERVARIX [Suspect]
     Active Substance: HUMAN PAPILLOMAVIRUS TYPE 16 L1 CAPSID PROTEIN RESIDUES 2-471 ANTIGEN\HUMAN PAPILLOMAVIRUS TYPE 18 L
     Indication: Immunisation
     Dates: start: 20250310
  3. REVAXIS [Suspect]
     Active Substance: DIPHTHERIA AND TETANUS TOXOIDS AND POLIOVIRUS VACCINE ANTIGENS
     Indication: Immunisation
     Dates: start: 20241001

REACTIONS (4)
  - Seizure [Recovering/Resolving]
  - Myalgia [Recovering/Resolving]
  - Nausea [Not Recovered/Not Resolved]
  - Headache [Not Recovered/Not Resolved]
